FAERS Safety Report 13526561 (Version 1)
Quarter: 2017Q2

REPORT INFORMATION
  Report Type: Report from Study
  Country: US (occurrence: US)
  Receive Date: 20170509
  Receipt Date: 20170509
  Transmission Date: 20170830
  Serious: Yes (Other)
  Sender: FDA-Public Use
  Company Number: US-UCBSA-2017015319

PATIENT
  Sex: Female

DRUGS (1)
  1. LACOSAMIDE. [Suspect]
     Active Substance: LACOSAMIDE
     Indication: PRODUCT USED FOR UNKNOWN INDICATION
     Dosage: UNK

REACTIONS (8)
  - Crying [Unknown]
  - Seizure [Unknown]
  - Nausea [Unknown]
  - Aphasia [Unknown]
  - Movement disorder [Unknown]
  - Tremor [Unknown]
  - Pruritus [Unknown]
  - Anger [Unknown]
